FAERS Safety Report 13020432 (Version 1)
Quarter: 2016Q4

REPORT INFORMATION
  Report Type: Spontaneous
  Country: US (occurrence: US)
  Receive Date: 20161212
  Receipt Date: 20161212
  Transmission Date: 20170207
  Serious: Yes (Hospitalization)
  Sender: FDA-Public Use
  Company Number: US-ALLERGAN-1679607US

PATIENT
  Age: 73 Year
  Sex: Male
  Weight: 95.24 kg

DRUGS (3)
  1. CARAFATE [Suspect]
     Active Substance: SUCRALFATE
     Dosage: UNK
  2. CARAFATE [Suspect]
     Active Substance: SUCRALFATE
     Indication: GASTRIC DISORDER
     Dosage: UNK
     Route: 048
     Dates: start: 2001
  3. INFLUENZA VACCINE [Concomitant]
     Active Substance: INFLUENZA VIRUS VACCINE
     Indication: PRODUCT USED FOR UNKNOWN INDICATION
     Dosage: UNK UNK, SINGLE
     Route: 065
     Dates: start: 201511, end: 201511

REACTIONS (6)
  - Paraesthesia [Recovered/Resolved]
  - Muscular weakness [Recovered/Resolved]
  - Guillain-Barre syndrome [Recovered/Resolved]
  - Pain in extremity [Recovered/Resolved]
  - Hypoaesthesia [Recovered/Resolved]
  - Burning sensation [Recovered/Resolved]

NARRATIVE: CASE EVENT DATE: 20151127
